FAERS Safety Report 9037977 (Version 1)
Quarter: 2013Q1

REPORT INFORMATION
  Report Type: Report from Study
  Country: US (occurrence: US)
  Receive Date: 20130129
  Receipt Date: 20130129
  Transmission Date: 20140127
  Serious: No
  Sender: FDA-Public Use
  Company Number: US-ABBOTT-11P-163-0873763-00

PATIENT
  Age: 60 Year
  Sex: Female

DRUGS (9)
  1. HUMIRA 40 MG/0.8 ML PEN [Suspect]
     Indication: PSORIASIS
     Dosage: 80 MG LOADING DOSE 1/2
     Dates: start: 20111104, end: 20111104
  2. HUMIRA 40 MG/0.8 ML PEN [Suspect]
     Dates: start: 20111103
  3. LEXAPRO [Concomitant]
     Indication: DEPRESSION
     Dosage: 10 MG DAILY
     Route: 048
  4. LEXAPRO [Concomitant]
     Indication: ANXIETY
  5. XANAX [Concomitant]
     Indication: INSOMNIA
     Dosage: PRN HS
  6. XANAX [Concomitant]
     Indication: ANXIETY
  7. ADVIL [Concomitant]
     Indication: PAIN
     Dosage: 3 TABLETS PRN
  8. TYLENOL [Concomitant]
     Indication: PAIN
     Dosage: 3 TABLETS PRN
  9. ASTHMA INHALER [Concomitant]
     Indication: DYSPNOEA
     Dosage: PRN

REACTIONS (5)
  - Injection site pain [Recovered/Resolved]
  - Anxiety [Unknown]
  - Injection site pain [Recovered/Resolved]
  - Injection site pain [Not Recovered/Not Resolved]
  - Sinusitis [Not Recovered/Not Resolved]
